FAERS Safety Report 22655639 (Version 1)
Quarter: 2023Q2

REPORT INFORMATION
  Report Type: Spontaneous
  Country: US (occurrence: None)
  Receive Date: 20230629
  Receipt Date: 20230629
  Transmission Date: 20230722
  Serious: No
  Sender: FDA-Public Use
  Company Number: None

PATIENT
  Age: 62 Year
  Sex: Male
  Weight: 92.25 kg

DRUGS (8)
  1. WEGOVY [Suspect]
     Active Substance: SEMAGLUTIDE
     Indication: Obesity
     Dosage: FREQUENCY : WEEKLY;?
     Route: 058
     Dates: start: 20230118
  2. METFORMIN [Concomitant]
     Active Substance: METFORMIN HYDROCHLORIDE
     Dates: start: 20080101
  3. ATACAND [Concomitant]
     Dates: start: 20050101
  4. ATORVASTATIN [Concomitant]
     Dates: start: 20100101
  5. ASPIRIN [Concomitant]
     Active Substance: ASPIRIN
  6. ASPIRIN [Concomitant]
     Active Substance: ASPIRIN
  7. LATANOPROST [Concomitant]
     Active Substance: LATANOPROST
     Dates: start: 20150101
  8. AMLODIPINE [Concomitant]
     Active Substance: AMLODIPINE BESYLATE

REACTIONS (2)
  - Dysaesthesia [None]
  - Paraesthesia [None]

NARRATIVE: CASE EVENT DATE: 20230628
